FAERS Safety Report 9994744 (Version 1)
Quarter: 2014Q1

REPORT INFORMATION
  Report Type: Spontaneous
  Country: DE (occurrence: None)
  Receive Date: 20140306
  Receipt Date: 20140306
  Transmission Date: 20141002
  Serious: Yes (Hospitalization)
  Sender: FDA-Public Use
  Company Number: 1402-0438

PATIENT
  Age: 84 Year
  Sex: Female

DRUGS (2)
  1. EYLEA (AFLIBERCEPT) (INJECTION) (AFLIBERCEPT) [Suspect]
     Indication: AGE-RELATED MACULAR DEGENERATION
     Route: 031
     Dates: start: 201301
  2. WARFARIN (WARFARIN) [Concomitant]

REACTIONS (4)
  - Cardiac pacemaker insertion [None]
  - Atrial fibrillation [None]
  - Intestinal obstruction [None]
  - Haemorrhage [None]
